FAERS Safety Report 9676283 (Version 3)
Quarter: 2014Q2

REPORT INFORMATION
  Report Type: Report from Study
  Country: GB (occurrence: GB)
  Receive Date: 20131107
  Receipt Date: 20140520
  Transmission Date: 20141212
  Serious: Yes (Hospitalization)
  Sender: FDA-Public Use
  Company Number: GB-ROCHE-1198656

PATIENT
  Age: 77 Year
  Sex: Female
  Weight: 87.4 kg

DRUGS (19)
  1. OBINUTUZUMAB [Suspect]
     Indication: NON-HODGKIN^S LYMPHOMA UNSPECIFIED HISTOLOGY INDOLENT
     Dosage: DATE OF MOST RECENT DOSE (DOSE CONCENTRATION :4 MG/ML; VOLUME : 250ML) :22/FEB/2013.
     Route: 042
     Dates: start: 20130208
  2. BENDAMUSTINE [Suspect]
     Indication: NON-HODGKIN^S LYMPHOMA UNSPECIFIED HISTOLOGY INDOLENT
     Dosage: DATE OF MOST RECENT DOSE (182 MG) : 09/FEB/2013.
     Route: 042
     Dates: start: 20130208
  3. PREDNISONE [Suspect]
     Indication: NON-HODGKIN^S LYMPHOMA UNSPECIFIED HISTOLOGY INDOLENT
     Dosage: MOST RECENT DOSE:22/FEB/2013;LAST DOSE:100 MG
     Route: 048
  4. LANSOPRAZOLE [Concomitant]
  5. LERCANIDIPINE [Concomitant]
     Indication: HYPERTENSION
  6. LEVOTHYROXINE [Concomitant]
     Indication: HYPOTHYROIDISM
  7. LIQUIFILM [Concomitant]
     Indication: DRY EYE
  8. MOXONIDINE [Concomitant]
     Indication: HYPERTENSION
  9. PRAVASTATIN [Concomitant]
  10. QUININE SULFATE [Concomitant]
     Indication: MUSCLE SPASMS
  11. RAMIPRIL [Concomitant]
     Indication: HYPERTENSION
  12. THICK + EASY [Concomitant]
     Dosage: POWDER
     Route: 065
  13. ASPIRIN [Concomitant]
     Indication: ANGINA PECTORIS
  14. ATENOLOL [Concomitant]
     Indication: HYPERTENSION
  15. BENDROFLUMETHIAZID [Concomitant]
     Indication: HYPERTENSION
  16. CO-CODAMOL [Concomitant]
     Indication: ANALGESIC THERAPY
  17. CO-AMILOFRUSE [Concomitant]
     Indication: JOINT SWELLING
  18. AMITRIPTYLINE [Concomitant]
     Indication: DEPRESSION
  19. AMITRIPTYLINE [Concomitant]
     Indication: NEURALGIA

REACTIONS (2)
  - Tachycardia [Recovered/Resolved]
  - Lethargy [Recovered/Resolved]
